FAERS Safety Report 4403915-3 (Version None)
Quarter: 2004Q3

REPORT INFORMATION
  Report Type: 
  Country: None (occurrence: None)
  Receive Date: 20040719
  Receipt Date: 20040701
  Transmission Date: 20050211
  Serious: Yes (Hospitalization)
  Sender: FDA-Public Use
  Company Number: DE-SHR-04-021513

PATIENT
  Age: 27 Year
  Sex: Female
  Weight: 65 kg

DRUGS (2)
  1. YASMIN [Suspect]
     Indication: ORAL CONTRACEPTION
     Dosage: 1 TAB(S), 21D(28D, ORAL
     Route: 048
     Dates: start: 20001001, end: 20030601
  2. MARCUMAR [Suspect]
     Indication: PULMONARY EMBOLISM

REACTIONS (2)
  - HEPATIC HAEMORRHAGE [None]
  - PULMONARY EMBOLISM [None]
